FAERS Safety Report 19912245 (Version 1)
Quarter: 2021Q4

REPORT INFORMATION
  Report Type: Spontaneous
  Country: US (occurrence: US)
  Receive Date: 20211004
  Receipt Date: 20211004
  Transmission Date: 20220303
  Serious: No
  Sender: FDA-Public Use
  Company Number: US-PFIZER INC-202101251856

PATIENT
  Age: 78 Year
  Sex: Female
  Weight: 54.43 kg

DRUGS (1)
  1. COLESTIPOL HYDROCHLORIDE [Suspect]
     Active Substance: COLESTIPOL HYDROCHLORIDE
     Indication: Crohn^s disease
     Dosage: 2 G, 2X/DAY [2 IN THE MORNING AFTER HER OTHER MEDS, AND THEN AN HOUR AFTER DINNER SHE TAKE 2 MORE]

REACTIONS (2)
  - Product package associated injury [Unknown]
  - Off label use [Unknown]

NARRATIVE: CASE EVENT DATE: 20200101
